FAERS Safety Report 5697889-5 (Version None)
Quarter: 2008Q2

REPORT INFORMATION
  Report Type: 
  Country: None (occurrence: None)
  Receive Date: 20080408
  Receipt Date: 20080327
  Transmission Date: 20081010
  Serious: Yes (Hospitalization, Other)
  Sender: FDA-Public Use
  Company Number: US-AVENTIS-200717928US

PATIENT
  Sex: Male
  Weight: 78.3 kg

DRUGS (11)
  1. KETEK [Suspect]
     Dosage: DOSE: UNK
     Dates: start: 20060926, end: 20060930
  2. VYTORIN [Concomitant]
     Dosage: DOSE: 10/40
  3. ASPIRIN [Concomitant]
  4. PLAVIX [Concomitant]
  5. ULTRACET [Concomitant]
     Dosage: DOSE: 1-2
  6. LIPITOR [Concomitant]
     Dates: start: 20050223
  7. LIPITOR [Concomitant]
     Dates: end: 20050515
  8. MUCINEX [Concomitant]
     Dosage: DOSE: UNK
     Dates: start: 20060925
  9. LORTAB [Concomitant]
     Route: 048
  10. ZOCOR [Concomitant]
     Route: 048
     Dates: start: 20050518
  11. XANAX [Concomitant]
     Dosage: DOSE: UNK
     Dates: end: 20061001

REACTIONS (23)
  - ABDOMINAL DISCOMFORT [None]
  - ABDOMINAL DISTENSION [None]
  - ANOREXIA [None]
  - ASCITES [None]
  - ASTHENIA [None]
  - BACK PAIN [None]
  - BLOOD BILIRUBIN INCREASED [None]
  - CHROMATURIA [None]
  - HEPATIC FUNCTION ABNORMAL [None]
  - HEPATITIS [None]
  - HEPATOMEGALY [None]
  - JAUNDICE [None]
  - LIVER DISORDER [None]
  - LYMPHADENOPATHY [None]
  - MANTLE CELL LYMPHOMA [None]
  - MASS [None]
  - METASTASES TO LYMPH NODES [None]
  - NIGHT SWEATS [None]
  - NON-HODGKIN'S LYMPHOMA [None]
  - OCULAR ICTERUS [None]
  - OEDEMA PERIPHERAL [None]
  - RASH [None]
  - WEIGHT DECREASED [None]
